FAERS Safety Report 14355959 (Version 2)
Quarter: 2018Q3

REPORT INFORMATION
  Report Type: Spontaneous
  Country: US (occurrence: US)
  Receive Date: 20180105
  Receipt Date: 20180730
  Transmission Date: 20181010
  Serious: No
  Sender: FDA-Public Use
  Company Number: US-PFIZER INC-2015404493

PATIENT
  Age: 65 Year
  Sex: Female
  Weight: 118.7 kg

DRUGS (36)
  1. RISPERDAL [Concomitant]
     Active Substance: RISPERIDONE
     Indication: AUTISM SPECTRUM DISORDER
  2. IMITREX [Concomitant]
     Active Substance: SUMATRIPTAN SUCCINATE
     Dosage: 6 MG, UNK (ONE TABLET AT THE ONSET AND THEN REPEAT EVERY 2 HOURS, TO THE MAX OF 4 AND A 24 HOUR)
     Route: 048
  3. VITAMIN D [Concomitant]
     Active Substance: CHOLECALCIFEROL
     Dosage: 1000 IU, DAILY
     Route: 048
  4. LYRICA [Suspect]
     Active Substance: PREGABALIN
     Dosage: 4 DF, UNK (I AM TAKING THREE TABLETS ONE DAY AND FOUR THE NEXT. EVERY OTHER DAY I TAKE FOUR)
     Dates: end: 20180531
  5. CALCIUM 600 + D [Concomitant]
     Active Substance: CALCIUM\VITAMIN D
     Dosage: 500 MG, DAILY
     Route: 048
  6. SYNTHROID [Concomitant]
     Active Substance: LEVOTHYROXINE SODIUM
     Dosage: 150 UG, 1X/DAY (EVERY MORNING)
     Route: 048
  7. SINGULAIR [Concomitant]
     Active Substance: MONTELUKAST SODIUM
     Dosage: 10 MG, 1X/DAY (TAKE ONE TABLET BY MOUTH EVERY EVENING)
     Route: 048
     Dates: start: 20150922
  8. RISPERDAL [Concomitant]
     Active Substance: RISPERIDONE
     Indication: BIPOLAR DISORDER
     Dosage: 1 MG, DAILY (ONCE AT BED TIME)
     Route: 048
  9. KENALOG [Concomitant]
     Active Substance: TRIAMCINOLONE ACETONIDE
     Dosage: UNK UNK, 2X/DAY (APPLY TO AFFECTED AREA TWICE DAILY FOR 1 WEEK)
     Route: 061
     Dates: start: 20150925
  10. GLIPIZIDE. [Concomitant]
     Active Substance: GLIPIZIDE
     Indication: GLUCOSE TOLERANCE IMPAIRED
     Dosage: 5 MG, 1X/DAY (ONCE IN THE MORNING)
     Route: 048
  11. NITROGLYCERIN. [Concomitant]
     Active Substance: NITROGLYCERIN
     Indication: CHEST PAIN
     Dosage: 0.4 MG, AS NEEDED (0.4 MG SL TABLET, ONE UNDER THE TONGUE AS NEEDED)
     Route: 060
  12. NEXIUM 24HR [Concomitant]
     Active Substance: ESOMEPRAZOLE MAGNESIUM
     Indication: GASTROOESOPHAGEAL REFLUX DISEASE
     Dosage: 22.3 MG, 1X/DAY (ONCE A DAY IN THE EVENING)
     Route: 048
     Dates: start: 201712
  13. COENZYME Q10 + VITAMIN E [Concomitant]
     Dosage: 1 DF, DAILY
     Route: 048
  14. ZOLOFT [Concomitant]
     Active Substance: SERTRALINE HYDROCHLORIDE
     Indication: DEPRESSION
  15. MECLIZINE [Concomitant]
     Active Substance: MECLIZINE HYDROCHLORIDE
     Indication: DIZZINESS
     Dosage: 25 MG, AS NEEDED (25 MG TABLET, THREE TIMES A DAY AS NEEDED)
     Dates: start: 201703
  16. OMEPRAZOLE. [Concomitant]
     Active Substance: OMEPRAZOLE
     Indication: ABDOMINAL DISCOMFORT
     Dosage: 40 MG, 1X/DAY
     Route: 048
  17. BENZONATATE. [Concomitant]
     Active Substance: BENZONATATE
     Dosage: 100 MG, UNK
  18. SYNTHROID [Concomitant]
     Active Substance: LEVOTHYROXINE SODIUM
     Indication: THYROID DISORDER
     Dosage: 137 UG, DAILY  (TAKE 1 TABLET BY MOUTH DAILY)
     Route: 048
     Dates: start: 20150824
  19. MAGNESIUM CHELATE W/ZINC [Concomitant]
     Dosage: 1 DF, 3X/DAY (TAKE 1 TABLET BY MOUTH 3 (THREE) TIMES DAILY)
     Route: 048
  20. DITROPAN [Concomitant]
     Active Substance: OXYBUTYNIN CHLORIDE
     Indication: BLADDER DISORDER
     Dosage: 5 MG, 3X/DAY
     Route: 048
     Dates: start: 2001
  21. ZOLOFT [Concomitant]
     Active Substance: SERTRALINE HYDROCHLORIDE
     Indication: ANXIETY
  22. LYRICA [Suspect]
     Active Substance: PREGABALIN
     Dosage: 3 DF, UNK (TAKING THREE TABLETS ONE DAY)
  23. ZYRTEC [Concomitant]
     Active Substance: CETIRIZINE HYDROCHLORIDE
     Indication: HYPERSENSITIVITY
     Dosage: 10 MG, 1X/DAY
     Route: 048
  24. LYRICA [Suspect]
     Active Substance: PREGABALIN
     Indication: FIBROMYALGIA
     Dosage: 150 MG, 3X/DAY
     Route: 048
     Dates: start: 20150825
  25. NITROSTAT [Concomitant]
     Active Substance: NITROGLYCERIN
     Indication: CHEST PAIN
     Dosage: 0.4 MG, DISSOLVE 1 TAB UNDER TONGUE, IF PAIN REMAINS AFTER 5 MIN, REPEAT DOSE MAX 3 TABS IN 15 MIN
     Route: 060
     Dates: start: 20150827
  26. ZANTAC [Concomitant]
     Active Substance: RANITIDINE HYDROCHLORIDE
     Dosage: 300 MG, DAILY
     Route: 048
     Dates: start: 20150917
  27. ZOLOFT [Concomitant]
     Active Substance: SERTRALINE HYDROCHLORIDE
     Indication: AUTISM SPECTRUM DISORDER
  28. CLARITIN [Concomitant]
     Active Substance: LORATADINE
     Indication: HYPERSENSITIVITY
     Dosage: 10 MG, 1X/DAY (IN MORNING)
     Route: 048
  29. PLAVIX [Concomitant]
     Active Substance: CLOPIDOGREL BISULFATE
     Indication: TRANSIENT ISCHAEMIC ATTACK
     Dosage: 75 MG, DAILY (AKE 1 TABLET BY MOUTH DAILY)
     Route: 048
     Dates: start: 20151006
  30. GARLIC. [Concomitant]
     Active Substance: GARLIC
     Dosage: UNK UNK, AS NEEDED (TAKE BY MOUTH AS NEEDED)
     Route: 048
  31. DITROPAN [Concomitant]
     Active Substance: OXYBUTYNIN CHLORIDE
     Indication: URINARY INCONTINENCE
     Dosage: 5 MG, 3X/DAY
     Route: 048
     Dates: start: 20140512
  32. DOCUSATE SODIUM W/SENNA [Concomitant]
     Active Substance: DOCUSATE SODIUM\SENNA LEAF
     Dosage: 2 DF, DAILY [DOCUSATE SODIUM?50MG]/[SENNA ALEXANDRINA?8.6 MG]
     Route: 048
  33. ZOLOFT [Concomitant]
     Active Substance: SERTRALINE HYDROCHLORIDE
     Indication: BIPOLAR DISORDER
     Dosage: 100 MG, DAILY (100 MG TABLET, BY MOUTH IN THE MORNING)
     Route: 048
  34. IMITREX [Concomitant]
     Active Substance: SUMATRIPTAN SUCCINATE
     Indication: MIGRAINE
     Dosage: 50 MG, AS NEEDED (TAKE 1 TABLET BY MOUTH/(1 TABLETS) BY MOUTH AT ONSET OF HEADACHE, REPEAT EVERY 2 )
     Route: 048
     Dates: start: 20150812
  35. BENZONATATE. [Concomitant]
     Active Substance: BENZONATATE
     Dosage: UNK
  36. PROTONIX [Concomitant]
     Active Substance: PANTOPRAZOLE SODIUM
     Indication: ABDOMINAL DISCOMFORT
     Dosage: 40 MG, 1X/DAY
     Route: 048

REACTIONS (5)
  - Product use issue [Recovered/Resolved]
  - Fatigue [Recovered/Resolved]
  - Weight increased [Recovered/Resolved]
  - Insomnia [Recovered/Resolved]
  - Drug effect incomplete [Recovered/Resolved]
